FAERS Safety Report 18922290 (Version 1)
Quarter: 2021Q1

REPORT INFORMATION
  Report Type: Spontaneous
  Country: US (occurrence: US)
  Receive Date: 20210222
  Receipt Date: 20210222
  Transmission Date: 20210420
  Serious: Yes (Hospitalization, Other)
  Sender: FDA-Public Use
  Company Number: None

PATIENT
  Age: 81 Year
  Sex: Female
  Weight: 108.9 kg

DRUGS (1)
  1. CASIRIVIMAB?IMDEVIMAB [Suspect]
     Active Substance: CASIRIVIMAB\IMDEVIMAB
     Indication: COVID-19
     Dosage: ?          OTHER FREQUENCY:ONCE;?
     Route: 042
     Dates: start: 20210217, end: 20210217

REACTIONS (10)
  - Myalgia [None]
  - Dyspnoea [None]
  - Nasal congestion [None]
  - Hypotension [None]
  - Fatigue [None]
  - External vagal nerve stimulation [None]
  - Upper-airway cough syndrome [None]
  - Somnolence [None]
  - Dizziness [None]
  - Hypokalaemia [None]

NARRATIVE: CASE EVENT DATE: 20210220
